FAERS Safety Report 8112800-5 (Version None)
Quarter: 2012Q1

REPORT INFORMATION
  Report Type: 
  Country: None (occurrence: None)
  Receive Date: 20120203
  Receipt Date: 20120124
  Transmission Date: 20120608
  Serious: Yes (Hospitalization, Congenital Anomaly)
  Sender: FDA-Public Use
  Company Number: FR-BRISTOL-MYERS SQUIBB COMPANY-16371429

PATIENT
  Sex: Male
  Weight: 3 kg

DRUGS (6)
  1. OXAZEPAM [Suspect]
     Route: 064
     Dates: start: 20110101, end: 20110426
  2. RISPERDAL [Suspect]
     Dosage: FROM 18AUG2011 TO 22SEP2011; FROM JAN2011 TO 26APR2011
     Route: 064
     Dates: start: 20100818, end: 20110426
  3. SERTRALINE HYDROCHLORIDE [Suspect]
     Route: 064
     Dates: start: 20100922, end: 20100930
  4. ABILIFY [Suspect]
     Route: 064
     Dates: start: 20100922, end: 20100930
  5. EFFEXOR [Suspect]
     Dosage: 75 MG, 3 EXTENDED-RELEASE CAPSULES DAILY
     Route: 064
     Dates: start: 20100818, end: 20100922
  6. LOXAPINE HCL [Suspect]
     Route: 064
     Dates: start: 20110418, end: 20110426

REACTIONS (3)
  - FEEDING DISORDER NEONATAL [None]
  - ATRIAL SEPTAL DEFECT [None]
  - POOR WEIGHT GAIN NEONATAL [None]
